FAERS Safety Report 9613633 (Version 2)
Quarter: 2013Q4

REPORT INFORMATION
  Report Type: Report from Study
  Country: US (occurrence: US)
  Receive Date: 20131010
  Receipt Date: 20131029
  Transmission Date: 20140711
  Serious: Yes (Hospitalization, Other)
  Sender: FDA-Public Use
  Company Number: US-ABBVIE-13P-163-1153249-00

PATIENT
  Sex: Male

DRUGS (9)
  1. HUMIRA [Suspect]
     Indication: PSORIATIC ARTHROPATHY
  2. DICLOFENAC [Concomitant]
     Indication: PRODUCT USED FOR UNKNOWN INDICATION
  3. METHOTREXATE [Concomitant]
     Indication: PRODUCT USED FOR UNKNOWN INDICATION
  4. SEROQUEL [Concomitant]
     Indication: PRODUCT USED FOR UNKNOWN INDICATION
  5. LORAZEPAM [Concomitant]
     Indication: PRODUCT USED FOR UNKNOWN INDICATION
  6. LAMICTAL [Concomitant]
     Indication: PRODUCT USED FOR UNKNOWN INDICATION
  7. PRISTIQ [Concomitant]
     Indication: PRODUCT USED FOR UNKNOWN INDICATION
  8. VARIOUS MULTI-VITAMINS [Concomitant]
     Indication: PRODUCT USED FOR UNKNOWN INDICATION
  9. FEW UNKNOWN MEDICATIONS [Concomitant]
     Indication: ASTHMA

REACTIONS (11)
  - Epistaxis [Not Recovered/Not Resolved]
  - Skin atrophy [Unknown]
  - Sinusitis [Unknown]
  - Sinusitis [Unknown]
  - Sinusitis [Unknown]
  - Sinusitis [Unknown]
  - Sinusitis [Unknown]
  - Sinusitis [Unknown]
  - Sinusitis [Unknown]
  - Nasal congestion [Unknown]
  - Feeling abnormal [Unknown]
